FAERS Safety Report 11415876 (Version 1)
Quarter: 2015Q3

REPORT INFORMATION
  Report Type: Report from Study
  Country: US (occurrence: US)
  Receive Date: 20150825
  Receipt Date: 20150825
  Transmission Date: 20151125
  Serious: No
  Sender: FDA-Public Use
  Company Number: US-UNITED THERAPEUTICS-P01-581

PATIENT
  Age: 46 Year
  Sex: Female
  Weight: 72 kg

DRUGS (3)
  1. TREPROSTINIL SODIUM (SQ/IV) [Suspect]
     Active Substance: TREPROSTINIL SODIUM
     Indication: PULMONARY HYPERTENSION
     Dosage: 21 NG/KG/MIN
     Route: 058
     Dates: start: 19991109
  2. LOTENSIN [Concomitant]
     Active Substance: BENAZEPRIL HYDROCHLORIDE
     Dates: start: 1999
  3. ADALAT [Concomitant]
     Active Substance: NIFEDIPINE
     Dates: start: 1999

REACTIONS (1)
  - Infusion site abscess [Recovered/Resolved]

NARRATIVE: CASE EVENT DATE: 20010104
